FAERS Safety Report 8093991-1 (Version None)
Quarter: 2012Q1

REPORT INFORMATION
  Report Type: 
  Country: None (occurrence: None)
  Receive Date: 20120130
  Receipt Date: 20120120
  Transmission Date: 20120608
  Serious: Yes (Death, Hospitalization)
  Sender: FDA-Public Use
  Company Number: US-BRISTOL-MYERS SQUIBB COMPANY-16288383

PATIENT
  Age: 57 Year
  Sex: Male

DRUGS (4)
  1. YERVOY [Suspect]
     Indication: METASTATIC MALIGNANT MELANOMA
     Route: 042
     Dates: start: 20110628
  2. NEXIUM [Concomitant]
     Route: 048
  3. VALIUM [Concomitant]
     Route: 048
  4. METOPROLOL TARTRATE [Concomitant]
     Route: 048

REACTIONS (3)
  - NEOPLASM MALIGNANT [None]
  - ACUTE HEPATIC FAILURE [None]
  - ANAEMIA [None]
